FAERS Safety Report 20254862 (Version 1)
Quarter: 2021Q4

REPORT INFORMATION
  Report Type: Report from Study
  Country: US (occurrence: US)
  Receive Date: 20211230
  Receipt Date: 20211230
  Transmission Date: 20220303
  Serious: Yes (Death)
  Sender: FDA-Public Use
  Company Number: US-PHARMACOVIGILANCE-US-KAD-21-00413

PATIENT
  Age: 68 Year
  Sex: Male

DRUGS (1)
  1. BELUMOSUDIL [Suspect]
     Active Substance: BELUMOSUDIL
     Indication: Product used for unknown indication
     Dosage: 200 MILLIGRAMS ONCE DAILY
     Dates: start: 20210828, end: 20211227

REACTIONS (1)
  - Death [Fatal]

NARRATIVE: CASE EVENT DATE: 20211227
